FAERS Safety Report 9233749 (Version 2)
Quarter: 2013Q2

REPORT INFORMATION
  Report Type: Spontaneous
  Country: JP (occurrence: JP)
  Receive Date: 20130416
  Receipt Date: 20130422
  Transmission Date: 20140414
  Serious: Yes (Hospitalization)
  Sender: FDA-Public Use
  Company Number: PHHY2013JP035929

PATIENT
  Age: 70 Year
  Sex: Female
  Weight: 40 kg

DRUGS (1)
  1. DICLOFENAC [Suspect]
     Indication: RHEUMATIC DISORDER
     Route: 048

REACTIONS (11)
  - Gastrointestinal mucosal disorder [Unknown]
  - Diverticulitis intestinal haemorrhagic [Recovered/Resolved]
  - Duodenal ulcer [Recovered/Resolved]
  - Jejunal ulcer [Recovered/Resolved]
  - Gastric ulcer [Recovered/Resolved]
  - Ileal ulcer [Recovered/Resolved]
  - Anaemia [Recovered/Resolved]
  - Melaena [Recovered/Resolved]
  - Faeces discoloured [Recovered/Resolved]
  - Abdominal tenderness [Recovered/Resolved]
  - Renal impairment [Unknown]
